FAERS Safety Report 5204896-5 (Version None)
Quarter: 2007Q1

REPORT INFORMATION
  Report Type: 
  Country: None (occurrence: None)
  Receive Date: 20070110
  Receipt Date: 20060828
  Transmission Date: 20070707
  Serious: Yes (Other)
  Sender: FDA-Public Use
  Company Number: US-BRISTOL-MYERS SQUIBB COMPANY-13490040

PATIENT
  Age: 12 Year
  Sex: Male
  Weight: 2 kg

DRUGS (2)
  1. ABILIFY [Suspect]
     Dates: start: 20060817, end: 20060823
  2. CONCERTA [Concomitant]
     Dates: start: 20050823

REACTIONS (4)
  - CONFUSIONAL STATE [None]
  - DIZZINESS [None]
  - EPISTAXIS [None]
  - INCORRECT DOSE ADMINISTERED [None]
